FAERS Safety Report 7235042-4 (Version None)
Quarter: 2011Q1

REPORT INFORMATION
  Report Type: 
  Country: None (occurrence: None)
  Receive Date: 20110114
  Receipt Date: 20110114
  Transmission Date: 20110831
  Serious: No
  Sender: FDA-Public Use
  Company Number: None

PATIENT
  Age: 18 Year
  Sex: Male

DRUGS (1)
  1. BUPROPION ER 300 MG [Suspect]
     Indication: MAJOR DEPRESSION
     Dosage: ONE P.O. Q. DAY PO
     Route: 048

REACTIONS (5)
  - PRODUCT SUBSTITUTION ISSUE [None]
  - THERAPEUTIC RESPONSE UNEXPECTED WITH DRUG SUBSTITUTION [None]
  - MOOD SWINGS [None]
  - TREMOR [None]
  - IRRITABILITY [None]
